FAERS Safety Report 11916629 (Version 1)
Quarter: 2016Q1

REPORT INFORMATION
  Report Type: Spontaneous
  Country: PL (occurrence: PL)
  Receive Date: 20160114
  Receipt Date: 20160114
  Transmission Date: 20160526
  Serious: Yes (Other)
  Sender: FDA-Public Use
  Company Number: PHHY2016PL002814

PATIENT
  Age: 20 Year
  Sex: Male

DRUGS (1)
  1. CICLOSPORIN [Suspect]
     Active Substance: CYCLOSPORINE
     Indication: COELIAC DISEASE
     Route: 065

REACTIONS (3)
  - Drug ineffective [Unknown]
  - Musculoskeletal pain [Unknown]
  - Thrombocytopenia [Unknown]
